FAERS Safety Report 9163631 (Version 1)
Quarter: 2013Q1

REPORT INFORMATION
  Report Type: Spontaneous
  Country: US (occurrence: US)
  Receive Date: 20130314
  Receipt Date: 20130314
  Transmission Date: 20140127
  Serious: Yes (Other)
  Sender: FDA-Public Use
  Company Number: US-AMGEN-USASP2013015174

PATIENT
  Age: 78 Year
  Sex: Male

DRUGS (2)
  1. SENSIPAR [Suspect]
     Indication: HYPERPARATHYROIDISM SECONDARY
     Dosage: 30 MG, UNK
  2. TAMOXIFEN [Interacting]
     Dosage: 20 MG, UNK
     Dates: start: 2011

REACTIONS (2)
  - Breast cancer male [Unknown]
  - Drug interaction [Unknown]
